FAERS Safety Report 7043454-7 (Version None)
Quarter: 2010Q3

REPORT INFORMATION
  Report Type: 
  Country: None (occurrence: None)
  Receive Date: 20100929
  Receipt Date: 20100615
  Transmission Date: 20110219
  Serious: No
  Sender: FDA-Public Use
  Company Number: US-WYE-H16064210

PATIENT
  Age: 51 Year
  Sex: Female
  Weight: 61.29 kg

DRUGS (4)
  1. PRISTIQ [Suspect]
     Indication: DEPRESSION
     Dosage: 50 MG 1X PER 1 DAY, ORAL
     Route: 048
     Dates: start: 20100501
  2. TRAMADOL HCL [Suspect]
     Indication: PAIN
     Dosage: ORAL
     Route: 048
  3. CLONAZEPAM [Concomitant]
  4. TRAZODONE HCL [Concomitant]

REACTIONS (3)
  - DRUG INTERACTION [None]
  - HEADACHE [None]
  - INSOMNIA [None]
